FAERS Safety Report 10600781 (Version 1)
Quarter: 2014Q4

REPORT INFORMATION
  Report Type: Spontaneous
  Country: CA (occurrence: CA)
  Receive Date: 20141124
  Receipt Date: 20141124
  Transmission Date: 20150529
  Serious: Yes (Hospitalization)
  Sender: FDA-Public Use
  Company Number: CA-CIPLA LTD.-2014CA02002

PATIENT

DRUGS (4)
  1. ETHANOL [Suspect]
     Active Substance: ALCOHOL
  2. METFORMIN [Suspect]
     Active Substance: METFORMIN HYDROCHLORIDE
     Indication: TYPE 2 DIABETES MELLITUS
     Dosage: 7 TABLETS OF 500 MG METFORMIN
  3. AMLODIPINE [Suspect]
     Active Substance: AMLODIPINE BESYLATE
     Dosage: 30 TABLETS OF 10 MG AMLODIPINE
  4. GLYBURIDE. [Suspect]
     Active Substance: GLYBURIDE

REACTIONS (6)
  - Metabolic acidosis [Recovered/Resolved]
  - Hypotension [Recovered/Resolved]
  - Suicide attempt [Recovered/Resolved]
  - Hyperhidrosis [Recovered/Resolved]
  - Toxicity to various agents [Recovered/Resolved]
  - Shock [Recovered/Resolved]
